FAERS Safety Report 7573138-8 (Version None)
Quarter: 2011Q2

REPORT INFORMATION
  Report Type: 
  Country: None (occurrence: None)
  Receive Date: 20110620
  Receipt Date: 20110606
  Transmission Date: 20111010
  Serious: Yes (Death, Life-Threatening, Hospitalization)
  Sender: FDA-Public Use
  Company Number: 2011CP000112

PATIENT
  Age: 80 Year
  Sex: Male

DRUGS (8)
  1. ATORVASTATIN CALCIUM [Suspect]
     Dosage: ; PO
     Route: 048
     Dates: end: 20110311
  2. ASPIRIN [Concomitant]
  3. FUROSEMIDE [Concomitant]
  4. PERINDOPRIL ERBUMINE [Suspect]
     Dosage: 1 DOSAGE FORM; 1 DAY; PO
     Route: 048
     Dates: start: 20100801, end: 20110311
  5. FLUINDIONE [Concomitant]
  6. ACETAMINOPHEN [Suspect]
     Dosage: ; IV
     Route: 042
     Dates: start: 20110310, end: 20110312
  7. CLOPIDOGREL BISULFATE [Concomitant]
  8. MULTAQ [Suspect]
     Dosage: 1 DOSAGE FORM; 1 DAY;
     Dates: start: 20101001, end: 20110311

REACTIONS (2)
  - HEPATIC FAILURE [None]
  - MYOCARDIAL INFARCTION [None]
